FAERS Safety Report 10565061 (Version 4)
Quarter: 2015Q1

REPORT INFORMATION
  Report Type: Report from Study
  Country: US (occurrence: US)
  Receive Date: 20141105
  Receipt Date: 20150101
  Transmission Date: 20150720
  Serious: Yes (Other)
  Sender: FDA-Public Use
  Company Number: US-BIOGENIDEC-2014BI113972

PATIENT
  Age: 54 Year
  Sex: Male
  Weight: 63 kg

DRUGS (10)
  1. TYSABRI [Suspect]
     Active Substance: NATALIZUMAB
     Indication: MULTIPLE SCLEROSIS
     Route: 042
     Dates: start: 20070912, end: 20100513
  2. TRAMADOL HCL [Concomitant]
     Active Substance: TRAMADOL HYDROCHLORIDE
     Route: 048
  3. LYRICA [Concomitant]
     Active Substance: PREGABALIN
     Route: 048
  4. ZOLPIDEM TARTRATE. [Concomitant]
     Active Substance: ZOLPIDEM TARTRATE
     Route: 048
  5. TYSABRI [Suspect]
     Active Substance: NATALIZUMAB
     Indication: MULTIPLE SCLEROSIS
     Route: 042
     Dates: start: 20110715
  6. BACLOFEN. [Concomitant]
     Active Substance: BACLOFEN
     Indication: MUSCLE SPASMS
     Route: 048
  7. AMPYRA [Concomitant]
     Active Substance: DALFAMPRIDINE
  8. VITAMIN B12 [Concomitant]
     Active Substance: CYANOCOBALAMIN
     Route: 048
  9. DETROL LA [Concomitant]
     Active Substance: TOLTERODINE TARTRATE
     Route: 048
  10. VITAMIN D [Concomitant]
     Active Substance: CHOLECALCIFEROL
     Route: 048

REACTIONS (16)
  - Coordination abnormal [Unknown]
  - Asthenia [Unknown]
  - Complex partial seizures [Unknown]
  - Confusional state [Unknown]
  - Memory impairment [Not Recovered/Not Resolved]
  - Pain in extremity [Unknown]
  - Disturbance in attention [Unknown]
  - Urinary hesitation [Unknown]
  - Gait disturbance [Unknown]
  - Depression [Unknown]
  - Muscle spasticity [Unknown]
  - Drug dose omission [Unknown]
  - Paraesthesia [Unknown]
  - Balance disorder [Unknown]
  - Seizure [Recovered/Resolved]
  - Pollakiuria [Unknown]

NARRATIVE: CASE EVENT DATE: 201408
